FAERS Safety Report 7322068-5 (Version None)
Quarter: 2011Q1

REPORT INFORMATION
  Report Type: 
  Country: None (occurrence: None)
  Receive Date: 20110228
  Receipt Date: 20110214
  Transmission Date: 20110831
  Serious: Yes (Death, Hospitalization, Other)
  Sender: FDA-Public Use
  Company Number: US-CELGENEUS-163-21880-10112675

PATIENT
  Sex: Male

DRUGS (2)
  1. REVLIMID [Suspect]
     Indication: MYELODYSPLASTIC SYNDROME
     Route: 048
     Dates: start: 20100301, end: 20101001
  2. REVLIMID [Suspect]
     Route: 048
     Dates: start: 20101001, end: 20101101

REACTIONS (3)
  - PNEUMONIA [None]
  - DEATH [None]
  - PLATELET COUNT DECREASED [None]
